FAERS Safety Report 22325760 (Version 4)
Quarter: 2023Q4

REPORT INFORMATION
  Report Type: Spontaneous
  Country: US (occurrence: US)
  Receive Date: 20230516
  Receipt Date: 20231208
  Transmission Date: 20240110
  Serious: Yes (Other)
  Sender: FDA-Public Use
  Company Number: US-ANIPHARMA-2023-US-002683

PATIENT
  Age: 80 Year
  Sex: Female
  Weight: 69.4 kg

DRUGS (16)
  1. CORTICOTROPIN [Suspect]
     Active Substance: CORTICOTROPIN
     Indication: Nephrotic syndrome
     Dosage: INJECT 80 UNITS (1 ML) SUBCUTANEOUSLY TWO TIMES A WEEK AS DIRECTED
     Route: 058
     Dates: start: 20230108
  2. AMLODIPINE [Concomitant]
     Active Substance: AMLODIPINE BESYLATE
  3. LOSARTAN [Concomitant]
     Active Substance: LOSARTAN
  4. METOPROLOL [Concomitant]
     Active Substance: METOPROLOL
  5. CALCIUM [Concomitant]
     Active Substance: CALCIUM
  6. ROSUVASTATIN [Concomitant]
     Active Substance: ROSUVASTATIN
  7. ISOSORBIDE [Concomitant]
     Active Substance: ISOSORBIDE
  8. ELIQUIS [Concomitant]
     Active Substance: APIXABAN
     Route: 065
     Dates: start: 20230923
  9. NEXIUM [Concomitant]
     Active Substance: ESOMEPRAZOLE MAGNESIUM
  10. TYLENOL [Concomitant]
     Active Substance: ACETAMINOPHEN
  11. METHOCARBAMOL [Concomitant]
     Active Substance: METHOCARBAMOL
  12. MAGNESIUM [Concomitant]
     Active Substance: MAGNESIUM
  13. Bayer chewable aspirin [Concomitant]
  14. COENZYME Q10 [Concomitant]
     Active Substance: DIETARY SUPPLEMENT\UBIDECARENONE
  15. PURELAX [Concomitant]
     Active Substance: POLYETHYLENE GLYCOL 3350
  16. FIBER [Concomitant]
     Dosage: DAILY

REACTIONS (19)
  - Asthenia [Unknown]
  - Pain in extremity [Not Recovered/Not Resolved]
  - Condition aggravated [Not Recovered/Not Resolved]
  - Hypertension [Not Recovered/Not Resolved]
  - Contraindicated product administered [Not Recovered/Not Resolved]
  - Sciatica [Not Recovered/Not Resolved]
  - Joint swelling [Unknown]
  - Skin discolouration [Unknown]
  - Arthralgia [Not Recovered/Not Resolved]
  - Alopecia [Not Recovered/Not Resolved]
  - Dry mouth [Unknown]
  - Atrial fibrillation [Unknown]
  - Heart rate decreased [Not Recovered/Not Resolved]
  - Oropharyngeal pain [Recovered/Resolved]
  - Nasopharyngitis [Recovered/Resolved]
  - Rhinorrhoea [Recovered/Resolved]
  - Product dose omission issue [Unknown]
  - Back pain [Not Recovered/Not Resolved]
  - Dysstasia [Unknown]

NARRATIVE: CASE EVENT DATE: 20230108
